FAERS Safety Report 16058504 (Version 1)
Quarter: 2019Q1

REPORT INFORMATION
  Report Type: Spontaneous
  Country: US (occurrence: US)
  Receive Date: 20190311
  Receipt Date: 20190311
  Transmission Date: 20190418
  Serious: Yes (Hospitalization, Other)
  Sender: FDA-Public Use
  Company Number: US-PFIZER INC-2019099757

PATIENT
  Sex: Female

DRUGS (1)
  1. LYRICA [Suspect]
     Active Substance: PREGABALIN
     Dosage: 450 MG, 1X/DAY (AT NIGHT)

REACTIONS (12)
  - Fall [Unknown]
  - Dehydration [Unknown]
  - Hypokalaemia [Unknown]
  - Muscle spasms [Unknown]
  - Vomiting [Unknown]
  - Renal failure [Unknown]
  - Incorrect dose administered [Unknown]
  - Hypotension [Unknown]
  - Cerebrovascular accident [Unknown]
  - Speech disorder [Unknown]
  - Measles [Unknown]
  - Amnesia [Unknown]
